FAERS Safety Report 12393324 (Version 1)
Quarter: 2016Q2

REPORT INFORMATION
  Report Type: Spontaneous
  Country: US (occurrence: US)
  Receive Date: 20160523
  Receipt Date: 20160523
  Transmission Date: 20160815
  Serious: Yes (Hospitalization)
  Sender: FDA-Public Use
  Company Number: US-JNJFOC-20160515492

PATIENT
  Age: 40 Year
  Sex: Female
  Weight: 72.12 kg

DRUGS (4)
  1. LANTUS [Concomitant]
     Active Substance: INSULIN GLARGINE
     Route: 065
     Dates: start: 2008
  2. INVOKANA [Suspect]
     Active Substance: CANAGLIFLOZIN
     Indication: TYPE 1 DIABETES MELLITUS
     Route: 048
     Dates: start: 20160412, end: 20160510
  3. HUMALOG [Concomitant]
     Active Substance: INSULIN LISPRO
     Dosage: SLIDING SCALE
     Route: 065
     Dates: start: 2008
  4. INVOKANA [Suspect]
     Active Substance: CANAGLIFLOZIN
     Indication: TYPE 1 DIABETES MELLITUS
     Route: 048
     Dates: start: 20160407, end: 20160411

REACTIONS (12)
  - Myocardial necrosis marker increased [Unknown]
  - Adverse event [Unknown]
  - Decreased appetite [Unknown]
  - Hospitalisation [Unknown]
  - Blood glucose decreased [Unknown]
  - Ketoacidosis [Unknown]
  - Weight decreased [Recovering/Resolving]
  - Off label use [Unknown]
  - Incorrect dose administered [Unknown]
  - Wrong technique in product usage process [Unknown]
  - Product use issue [Unknown]
  - Pollakiuria [Unknown]

NARRATIVE: CASE EVENT DATE: 201604
